FAERS Safety Report 7286063 (Version 3)
Quarter: 2013Q2

REPORT INFORMATION
  Report Type: Spontaneous
  Country: JP (occurrence: JP)
  Receive Date: 20100219
  Receipt Date: 20130531
  Transmission Date: 20140414
  Serious: Yes (Life-Threatening, Hospitalization, Disabling)
  Sender: FDA-Public Use
  Company Number: JP-GENZYME-POMP-1000262

PATIENT
  Age: 36 Year
  Sex: Male
  Weight: 35 kg

DRUGS (30)
  1. MYOZYME [Suspect]
     Indication: GLYCOGEN STORAGE DISEASE TYPE II
     Dosage: 750 MG, UNK
     Dates: start: 20061211
  2. MYOZYME [Suspect]
     Dosage: 650 MG, Q2W
     Route: 042
     Dates: start: 20061211
  3. MYOZYME [Suspect]
     Dosage: 18.6 MG/KG, UNK
     Route: 042
     Dates: start: 20061211
  4. CARBOCISTEINE [Concomitant]
     Indication: GLYCOGEN STORAGE DISEASE TYPE II
     Dosage: 500 MG, TID
     Route: 048
     Dates: start: 20070515
  5. FURSULTIAMINE [Concomitant]
     Indication: GLYCOGEN STORAGE DISEASE TYPE II
     Dosage: 25 MG, TID
     Route: 048
     Dates: start: 20070903
  6. KAKKON-TO [Concomitant]
     Indication: GLYCOGEN STORAGE DISEASE TYPE II
     Dosage: 2.5 G, QD
     Route: 048
     Dates: start: 20070921
  7. BACTERIA NOS [Concomitant]
     Indication: PROPHYLAXIS AGAINST DIARRHOEA
     Dosage: 2 G, BID
     Route: 048
     Dates: start: 20080116
  8. OSELTAMIVIR PHOSPHATE [Concomitant]
     Indication: PRODUCT USED FOR UNKNOWN INDICATION
  9. ZOLPIDEM TARTRATE [Concomitant]
     Indication: INSOMNIA
  10. ESTAZOLAM [Concomitant]
     Indication: INSOMNIA
  11. CHLORPHENIRAMINE MALEATE [Concomitant]
     Indication: RHINITIS ALLERGIC
  12. CETIRIZINE [Concomitant]
     Indication: RHINITIS ALLERGIC
  13. EPINASTINE HYDROCHLORIDE [Concomitant]
     Indication: RHINITIS ALLERGIC
  14. DOMPERIDONE [Concomitant]
     Indication: NAUSEA
  15. CEFCAPENE PIVOXIL [Concomitant]
     Indication: PNEUMOTHORAX
  16. PANTETHINE [Concomitant]
     Indication: GASTROINTESTINAL DISORDER
  17. SODIUM PICOSULFATE [Concomitant]
     Indication: GASTROINTESTINAL DISORDER
  18. MAGNESIUM OXIDE [Concomitant]
     Indication: GASTROINTESTINAL DISORDER
  19. CLARITHROMYCIN [Concomitant]
     Indication: BRONCHITIS
  20. CETRAXATE HYDROCHLORIDE [Concomitant]
     Indication: GASTROINTESTINAL DISORDER
  21. MOSAPRIDE CITRATE [Concomitant]
     Indication: GASTROINTESTINAL DISORDER
  22. DEXAMETHASONE [Concomitant]
     Indication: MALNUTRITION
  23. LOXOPROFEN SODIUM [Concomitant]
     Indication: PROCEDURAL PAIN
  24. CARBOCISTEINE [Concomitant]
     Indication: BRONCHITIS
  25. BROMHEXINE HYDROCHLORIDE [Concomitant]
     Indication: BRONCHITIS
  26. AMBROXOL HYDROCHLORIDE [Concomitant]
     Indication: BRONCHITIS
  27. FAMOTIDINE [Concomitant]
     Indication: BRONCHITIS
  28. CEFDITOREN PIVOXIL [Concomitant]
     Indication: BRONCHITIS
  29. PROCAINE HYDROCHLORIDE [Concomitant]
     Indication: PNEUMOTHORAX
  30. TULOBUTEROL [Concomitant]
     Indication: GLYCOGEN STORAGE DISEASE TYPE II
     Dosage: 2 MG, UNK
     Route: 065

REACTIONS (9)
  - Rhinitis allergic [Recovered/Resolved]
  - Bronchitis chronic [Not Recovered/Not Resolved]
  - Gastroenteritis [Recovered/Resolved]
  - Gastrointestinal disorder [Not Recovered/Not Resolved]
  - Procedural pain [Not Recovered/Not Resolved]
  - Infectious pleural effusion [Recovered/Resolved with Sequelae]
  - Malnutrition [Not Recovered/Not Resolved]
  - Pneumothorax [Not Recovered/Not Resolved]
  - Bronchitis [Not Recovered/Not Resolved]
